FAERS Safety Report 13711514 (Version 2)
Quarter: 2017Q3

REPORT INFORMATION
  Report Type: Spontaneous
  Country: AT (occurrence: AT)
  Receive Date: 20170703
  Receipt Date: 20170811
  Transmission Date: 20171127
  Serious: Yes (Other)
  Sender: FDA-Public Use
  Company Number: AT-AMGEN-AUTSP2017100674

PATIENT
  Sex: Male

DRUGS (1)
  1. XGEVA [Suspect]
     Active Substance: DENOSUMAB
     Indication: PROSTATE CANCER
     Dosage: UNK
     Route: 065
     Dates: start: 2016

REACTIONS (1)
  - Metastases to spine [Unknown]
